FAERS Safety Report 25497367 (Version 1)
Quarter: 2025Q3

REPORT INFORMATION
  Report Type: Spontaneous
  Country: US (occurrence: US)
  Receive Date: 20250701
  Receipt Date: 20250701
  Transmission Date: 20251020
  Serious: Yes (Other)
  Sender: TEVA
  Company Number: US-TEVA-VS-3346873

PATIENT
  Sex: Female

DRUGS (1)
  1. ADDERALL [Suspect]
     Active Substance: AMPHETAMINE ASPARTATE\AMPHETAMINE SULFATE\DEXTROAMPHETAMINE SACCHARATE\DEXTROAMPHETAMINE SULFATE
     Indication: Attention deficit hyperactivity disorder
     Route: 065

REACTIONS (11)
  - Attention deficit hyperactivity disorder [Unknown]
  - Poor quality product administered [Unknown]
  - Anhedonia [Unknown]
  - Brain fog [Unknown]
  - Nausea [Unknown]
  - Depression [Unknown]
  - Drug ineffective [Unknown]
  - Product quality issue [Unknown]
  - Somnolence [Unknown]
  - Tinnitus [Unknown]
  - Fatigue [Unknown]

NARRATIVE: CASE EVENT DATE: 20240101
